FAERS Safety Report 18407311 (Version 1)
Quarter: 2020Q4

REPORT INFORMATION
  Report Type: Spontaneous
  Country: US (occurrence: US)
  Receive Date: 20201021
  Receipt Date: 20201021
  Transmission Date: 20210114
  Serious: Yes (Hospitalization)
  Sender: FDA-Public Use
  Company Number: US-ROCHE-2697873

PATIENT
  Age: 80 Year
  Sex: Female

DRUGS (1)
  1. XELODA [Suspect]
     Active Substance: CAPECITABINE
     Indication: BREAST CANCER FEMALE
     Dosage: THERAPY ONGOING:YES,
     Route: 048
     Dates: start: 20200501

REACTIONS (2)
  - Back pain [Unknown]
  - Fracture [Unknown]

NARRATIVE: CASE EVENT DATE: 20200828
